FAERS Safety Report 8391930-7 (Version None)
Quarter: 2012Q2

REPORT INFORMATION
  Report Type: 
  Country: None (occurrence: None)
  Receive Date: 20120529
  Receipt Date: 20120524
  Transmission Date: 20120825
  Serious: Yes (Hospitalization)
  Sender: FDA-Public Use
  Company Number: DE-GLAXOSMITHKLINE-B0801984A

PATIENT
  Sex: Female
  Weight: 56 kg

DRUGS (9)
  1. CARBOPLATIN [Suspect]
     Indication: BREAST CANCER
     Dosage: 286MG WEEKLY
     Route: 042
     Dates: start: 20120403
  2. GRANOCYTE [Concomitant]
     Dates: start: 20120508, end: 20120510
  3. DOXORUBICIN HCL [Suspect]
     Indication: BREAST CANCER
     Dosage: 32MG WEEKLY
     Route: 042
     Dates: start: 20120403
  4. FERROUS SULFATE TAB [Concomitant]
     Dates: start: 20120508
  5. EPOGEN [Concomitant]
     Dosage: 40000IU WEEKLY
     Dates: start: 20120508
  6. TRASTUZUMAB [Suspect]
     Indication: BREAST CANCER
     Dosage: 520MG EVERY 3 WEEKS
     Route: 042
     Dates: start: 20120403
  7. LAPATINIB [Suspect]
     Indication: BREAST CANCER
     Dosage: 750MG PER DAY
     Route: 048
     Dates: start: 20120404
  8. PACLITAXEL [Suspect]
     Indication: BREAST CANCER
     Dosage: 128MG WEEKLY
     Route: 042
     Dates: start: 20120403
  9. CIPROFLOXACIN [Concomitant]
     Dosage: 1000MG PER DAY
     Dates: start: 20120508

REACTIONS (1)
  - ANAEMIA [None]
